FAERS Safety Report 23805318 (Version 1)
Quarter: 2024Q2

REPORT INFORMATION
  Report Type: Spontaneous
  Country: CA (occurrence: CA)
  Receive Date: 20240502
  Receipt Date: 20240502
  Transmission Date: 20240715
  Serious: Yes (Hospitalization, Other)
  Sender: FDA-Public Use
  Company Number: CA-BAXTER-2024BAX017378

PATIENT
  Age: 15 Year
  Sex: Male
  Weight: 38.6 kg

DRUGS (35)
  1. CYCLOPHOSPHAMIDE [Suspect]
     Active Substance: CYCLOPHOSPHAMIDE
     Indication: Refractory cancer
     Dosage: 250 MG/M2 MAXIMUM 5 DAYS EVERY 21 DAYS, EVERY 1 DAYS, ONGOING
     Route: 042
     Dates: start: 20220704
  2. CYCLOPHOSPHAMIDE [Suspect]
     Active Substance: CYCLOPHOSPHAMIDE
     Indication: Recurrent cancer
     Dosage: UNK
     Route: 065
     Dates: start: 20170602, end: 20171001
  3. CYCLOPHOSPHAMIDE [Suspect]
     Active Substance: CYCLOPHOSPHAMIDE
     Indication: Neuroblastoma
  4. MESNA [Suspect]
     Active Substance: MESNA
     Indication: Neuroblastoma
     Dosage: UNK
     Route: 065
     Dates: start: 20170602, end: 20171001
  5. ONDANSETRON [Suspect]
     Active Substance: ONDANSETRON
     Indication: Nausea
     Dosage: 8 MG, TOTAL START DATE:JAN-2023
     Route: 065
  6. ONDANSETRON [Suspect]
     Active Substance: ONDANSETRON
     Indication: Vomiting
  7. DOXORUBICIN [Suspect]
     Active Substance: DOXORUBICIN
     Indication: Neuroblastoma
     Dosage: UNK
     Route: 065
     Dates: start: 20170602, end: 20171001
  8. VENETOCLAX [Suspect]
     Active Substance: VENETOCLAX
     Indication: Refractory cancer
     Dosage: 500 MG, EVERY 1 DAYS
     Route: 048
     Dates: start: 20220704, end: 20230124
  9. VENETOCLAX [Suspect]
     Active Substance: VENETOCLAX
     Indication: Recurrent cancer
  10. TOPOTECAN [Suspect]
     Active Substance: TOPOTECAN HYDROCHLORIDE
     Indication: Refractory cancer
     Dosage: 0.75 MG/M2 MAXIMUM 5 DAYS EVERY 21 DAYS, EVERY 1 DAYS, ONGOING
     Route: 042
     Dates: start: 20220704
  11. TOPOTECAN [Suspect]
     Active Substance: TOPOTECAN HYDROCHLORIDE
     Indication: Recurrent cancer
  12. PIPERACILLIN AND TAZOBACTAM [Concomitant]
     Active Substance: PIPERACILLIN SODIUM\TAZOBACTAM SODIUM
     Indication: Febrile neutropenia
     Dosage: 3770 MG, EVERY 6 HOURS
     Route: 065
     Dates: start: 20220714
  13. FILGRASTIM [Concomitant]
     Active Substance: FILGRASTIM
     Indication: Prophylaxis
     Dosage: 300 UG, EVERY 1 DAYS
     Route: 065
     Dates: start: 20220712
  14. DEXAMETHASONE [Concomitant]
     Active Substance: DEXAMETHASONE
     Indication: Nausea
     Dosage: 4 MG, 2/DAYS
     Route: 065
     Dates: start: 20220705
  15. ACETAMINOPHEN [Concomitant]
     Active Substance: ACETAMINOPHEN
     Indication: Pain prophylaxis
     Dosage: 650 MG, AS NECESSARY, START DATE: JAN-2023
     Route: 065
  16. ACETAMINOPHEN [Concomitant]
     Active Substance: ACETAMINOPHEN
     Indication: Antipyresis
  17. GRAVOL [Concomitant]
     Active Substance: DIMENHYDRINATE
     Indication: Nausea
     Dosage: 50 MG, 4/DAYS
     Route: 065
     Dates: start: 20220704
  18. CALCIUM [Concomitant]
     Active Substance: CALCIUM
     Indication: Mineral supplementation
     Dosage: 500 MG, EVERY 1 DAYS, START DATE:JAN-2023
     Route: 065
  19. CETIRIZINE [Concomitant]
     Active Substance: CETIRIZINE HYDROCHLORIDE
     Indication: Allergy prophylaxis
     Dosage: 20 MG, AS NECESSARY, START DATE:JAN-2023
     Route: 065
  20. CETIRIZINE [Concomitant]
     Active Substance: CETIRIZINE HYDROCHLORIDE
     Dosage: 10 MG, AS NECESSARY, START DATE: JAN-2023
     Route: 065
  21. DIPHENHYDRAMINE [Concomitant]
     Active Substance: DIPHENHYDRAMINE
     Indication: Allergy prophylaxis
     Dosage: 25 MG, AS NECESSARY, START DATE: JAN-2023
     Route: 065
  22. SULFAMETHOXAZOLE\TRIMETHOPRIM [Concomitant]
     Active Substance: SULFAMETHOXAZOLE\TRIMETHOPRIM
     Indication: Antibiotic therapy
     Dosage: 120 MG, EVERY 1 DAYS, START DATE: JAN-2023
     Route: 065
  23. SULFAMETHOXAZOLE\TRIMETHOPRIM [Concomitant]
     Active Substance: SULFAMETHOXAZOLE\TRIMETHOPRIM
     Dosage: 80 MG, EVERY 1 DAYS,START DATE:JAN-2023
     Route: 065
  24. GABAPENTIN [Concomitant]
     Active Substance: GABAPENTIN
     Indication: Back pain
     Dosage: 500 MG, 3/DAYS, START DATE: JAN-2023
     Route: 065
  25. GRANISETRON [Concomitant]
     Active Substance: GRANISETRON
     Indication: Nausea
     Dosage: 1.5 MG, AS NECESSARY, START DATE: JAN-2023
     Route: 065
  26. HYDROCORTISONE SODIUM SUCCINATE [Concomitant]
     Active Substance: HYDROCORTISONE SODIUM SUCCINATE
     Indication: Prophylaxis
     Dosage: 100 MG, TOTAL, START DATE: JAN-2023
     Route: 065
  27. HYDROCORTISONE SODIUM SUCCINATE [Concomitant]
     Active Substance: HYDROCORTISONE SODIUM SUCCINATE
     Dosage: 120 MG 30-MIN PRE TRANSFUSION, AS NECESSARY, START DATE: JAN-2023
     Route: 065
  28. HYDROMORPHONE [Concomitant]
     Active Substance: HYDROMORPHONE
     Indication: Back pain
     Dosage: 2 MG, AS NECESSARY, START DATE: JAN-2023
     Route: 065
  29. LANSOPRAZOLE [Concomitant]
     Active Substance: LANSOPRAZOLE
     Indication: Gastrooesophageal reflux prophylaxis
     Dosage: 15 MG, EVERY 1 DAYS, START DATE: JAN-2023
     Route: 065
  30. METHADONE HYDROCHLORIDE [Concomitant]
     Active Substance: METHADONE HYDROCHLORIDE
     Indication: Pain
     Dosage: 2 MG, START DATE: JAN-2023
     Route: 065
  31. METHADONE HYDROCHLORIDE [Concomitant]
     Active Substance: METHADONE HYDROCHLORIDE
     Indication: Back pain
     Dosage: 6 MG, 3/DAYS, START DATE:DEC-2022
     Route: 065
  32. ALBUTEROL [Concomitant]
     Active Substance: ALBUTEROL
     Indication: Prophylaxis
     Dosage: UNK, 5 MG, AS NECESSARY START DATE: JAN-2023
     Route: 065
  33. ALBUTEROL [Concomitant]
     Active Substance: ALBUTEROL
     Indication: Wheezing
  34. ALBUTEROL [Concomitant]
     Active Substance: ALBUTEROL
     Indication: Dyspnoea
  35. CHOLECALCIFEROL [Concomitant]
     Active Substance: CHOLECALCIFEROL
     Indication: Vitamin supplementation
     Dosage: 1000 U, EVERY 1 DAYS,START DATE: JAN-2023
     Route: 065

REACTIONS (8)
  - Adrenal insufficiency [Not Recovered/Not Resolved]
  - Hypotension [Unknown]
  - Hypoalbuminaemia [Unknown]
  - Febrile neutropenia [Recovered/Resolved]
  - Hypokalaemia [Unknown]
  - Blood bilirubin increased [Unknown]
  - Pancytopenia [Unknown]
  - White blood cell count decreased [Unknown]

NARRATIVE: CASE EVENT DATE: 20230125
